FAERS Safety Report 7344773-7 (Version None)
Quarter: 2011Q1

REPORT INFORMATION
  Report Type: 
  Country: None (occurrence: None)
  Receive Date: 20110310
  Receipt Date: 20110218
  Transmission Date: 20110831
  Serious: No
  Sender: FDA-Public Use
  Company Number: US-B.I. PHARMACEUTICALS,INC./RIDGEFIELD-2011-BP-04808BP

PATIENT
  Sex: Male

DRUGS (5)
  1. ZEGERID [Concomitant]
     Indication: BARRETT'S OESOPHAGUS
  2. CARVEDILOL [Concomitant]
     Indication: CARDIAC DISORDER
  3. PRADAXA [Suspect]
     Indication: ATRIAL FIBRILLATION
     Dosage: 300 MG
     Route: 048
     Dates: start: 20101201
  4. NIASPAN [Concomitant]
     Indication: BLOOD CHOLESTEROL INCREASED
  5. CRESTOR [Concomitant]
     Indication: BLOOD CHOLESTEROL INCREASED

REACTIONS (2)
  - HAEMORRHAGE [None]
  - FLUSHING [None]
